FAERS Safety Report 24206775 (Version 2)
Quarter: 2024Q3

REPORT INFORMATION
  Report Type: Spontaneous
  Country: JP (occurrence: JP)
  Receive Date: 20240813
  Receipt Date: 20240905
  Transmission Date: 20241017
  Serious: Yes (Death, Other)
  Sender: JAZZ
  Company Number: JP-JAZZ PHARMACEUTICALS-2024-JP-011580

PATIENT
  Age: 64 Year
  Sex: Male

DRUGS (4)
  1. VYXEOS [Suspect]
     Active Substance: CYTARABINE\DAUNORUBICIN
     Indication: Acute myeloid leukaemia
     Dosage: UNK
     Route: 042
     Dates: start: 20240717, end: 20240721
  2. DECADRON [Concomitant]
     Active Substance: DEXAMETHASONE
     Indication: Product used for unknown indication
     Dosage: 4 MG
     Dates: start: 20240717, end: 20240717
  3. DECADRON [Concomitant]
     Active Substance: DEXAMETHASONE
     Dosage: 4MG
     Dates: start: 20240719, end: 20240719
  4. DECADRON [Concomitant]
     Active Substance: DEXAMETHASONE
     Dosage: 4MG
     Dates: start: 20240721, end: 20240721

REACTIONS (4)
  - Acute myeloid leukaemia [Fatal]
  - Purpura [Unknown]
  - Pyrexia [Unknown]
  - Drug ineffective [Not Recovered/Not Resolved]

NARRATIVE: CASE EVENT DATE: 20240717
